FAERS Safety Report 21611367 (Version 1)
Quarter: 2022Q4

REPORT INFORMATION
  Report Type: Spontaneous
  Country: JP (occurrence: JP)
  Receive Date: 20221117
  Receipt Date: 20221117
  Transmission Date: 20230112
  Serious: Yes (Death)
  Sender: FDA-Public Use
  Company Number: JP-Eisai-202210908_LEN_P_1

PATIENT
  Age: 64 Year
  Sex: Female

DRUGS (2)
  1. LENVATINIB [Suspect]
     Active Substance: LENVATINIB
     Indication: Thyroid cancer
     Route: 048
  2. DENOSUMAB [Concomitant]
     Active Substance: DENOSUMAB
     Indication: Thyroid cancer
     Dosage: DOSE AND FREQUENCY UNKNOWN

REACTIONS (4)
  - Death [Fatal]
  - Haemoptysis [Unknown]
  - Dyspnoea [Unknown]
  - Oxygen saturation decreased [Unknown]
